FAERS Safety Report 20096598 (Version 1)
Quarter: 2021Q4

REPORT INFORMATION
  Report Type: Spontaneous
  Country: US (occurrence: US)
  Receive Date: 20211122
  Receipt Date: 20211122
  Transmission Date: 20220303
  Serious: No
  Sender: FDA-Public Use
  Company Number: US-ONCOPEPPR-00828

PATIENT
  Age: 74 Year
  Sex: Male

DRUGS (2)
  1. PEPAXTO [Suspect]
     Active Substance: MELPHALAN FLUFENAMIDE
     Indication: Plasma cell myeloma
     Route: 042
     Dates: start: 20210523
  2. PEPAXTO [Suspect]
     Active Substance: MELPHALAN FLUFENAMIDE
     Indication: Plasma cell myeloma
     Route: 042
     Dates: start: 20210629

REACTIONS (5)
  - Upper-airway cough syndrome [Not Recovered/Not Resolved]
  - Haemoglobin decreased [Unknown]
  - Stomatitis [Recovered/Resolved]
  - Intentional underdose [Unknown]
  - Platelet count decreased [Recovering/Resolving]
